FAERS Safety Report 12258044 (Version 6)
Quarter: 2017Q1

REPORT INFORMATION
  Report Type: Spontaneous
  Country: US (occurrence: US)
  Receive Date: 20160412
  Receipt Date: 20170118
  Transmission Date: 20170428
  Serious: Yes (Other)
  Sender: FDA-Public Use
  Company Number: US-PFIZER INC-2016169270

PATIENT
  Age: 69 Year
  Sex: Female
  Weight: 70.76 kg

DRUGS (14)
  1. LYRICA [Suspect]
     Active Substance: PREGABALIN
     Indication: PRURITUS
     Dosage: 150 MG IN THE MORNING AND 150 MG ^AT NOW^
     Dates: start: 201107
  2. LYRICA [Suspect]
     Active Substance: PREGABALIN
     Indication: PARAESTHESIA
  3. LYRICA [Suspect]
     Active Substance: PREGABALIN
     Indication: NERVE INJURY
     Dosage: 150 MG, 1X/DAY
     Dates: start: 2011
  4. LYRICA [Suspect]
     Active Substance: PREGABALIN
     Indication: SCRATCH
  5. ALENDRONATE [Concomitant]
     Active Substance: ALENDRONATE SODIUM
     Dosage: UNK
  6. LYRICA [Suspect]
     Active Substance: PREGABALIN
     Indication: INSOMNIA
  7. METHOTREXATE SODIUM. [Suspect]
     Active Substance: METHOTREXATE SODIUM
     Dosage: UNK
  8. CALCITONIN [Concomitant]
     Active Substance: CALCITONIN
     Dosage: UNK
  9. METFORMIN [Concomitant]
     Active Substance: METFORMIN HYDROCHLORIDE
     Dosage: UNK
  10. LYRICA [Suspect]
     Active Substance: PREGABALIN
     Indication: FORMICATION
  11. FAMOTIDINE. [Concomitant]
     Active Substance: FAMOTIDINE
     Dosage: UNK
  12. VITAMIN D2 [Concomitant]
     Active Substance: ERGOCALCIFEROL
     Dosage: UNK
  13. OTEZLA [Concomitant]
     Active Substance: APREMILAST
     Dosage: UNK
  14. IRON [Concomitant]
     Active Substance: IRON
     Dosage: UNK

REACTIONS (8)
  - Spinal fracture [Unknown]
  - Paraesthesia [Recovered/Resolved]
  - Scoliosis [Unknown]
  - Psoriatic arthropathy [Unknown]
  - Pain [Recovered/Resolved]
  - Insomnia [Recovered/Resolved]
  - Abasia [Unknown]
  - Spinal column stenosis [Unknown]

NARRATIVE: CASE EVENT DATE: 2011
